FAERS Safety Report 4637987-8 (Version None)
Quarter: 2005Q2

REPORT INFORMATION
  Report Type: 
  Country: None (occurrence: None)
  Receive Date: 20050415
  Receipt Date: 20050411
  Transmission Date: 20051028
  Serious: Yes (Death)
  Sender: FDA-Public Use
  Company Number: GBWYE575511APR05

PATIENT
  Sex: Female

DRUGS (3)
  1. EFEXOR XL [Suspect]
     Dosage: SEE IMAGE
     Dates: start: 20020101, end: 20040101
  2. EFEXOR XL [Suspect]
     Dosage: SEE IMAGE
     Dates: start: 20040101
  3. SULPIRIDE (SULPIRIDE, , ) [Suspect]
     Dosage: 200

REACTIONS (1)
  - SUDDEN DEATH [None]
